FAERS Safety Report 12140427 (Version 1)
Quarter: 2016Q1

REPORT INFORMATION
  Report Type: Spontaneous
  Country: US (occurrence: None)
  Receive Date: 20160302
  Receipt Date: 20160302
  Transmission Date: 20160526
  Serious: No
  Sender: FDA-Public Use
  Company Number: None

PATIENT
  Age: 46 Year
  Sex: Female
  Weight: 104.33 kg

DRUGS (10)
  1. BYDUREON [Suspect]
     Active Substance: EXENATIDE
     Indication: DIABETES MELLITUS INADEQUATE CONTROL
     Dosage: GIVEN INT/UNDER THE SKIN
     Dates: start: 20160123, end: 20160220
  2. HYDROCODONE [Concomitant]
     Active Substance: HYDROCODONE
  3. OMEPROZALE [Concomitant]
  4. MS CONTIN [Concomitant]
     Active Substance: MORPHINE SULFATE
  5. CARTIZEM [Concomitant]
  6. LANTUS [Concomitant]
     Active Substance: INSULIN GLARGINE
  7. CYMBALTA [Concomitant]
     Active Substance: DULOXETINE HYDROCHLORIDE
  8. VITAMIN B12 [Concomitant]
     Active Substance: CYANOCOBALAMIN
  9. LYRICA [Concomitant]
     Active Substance: PREGABALIN
  10. LISINOPRIL. [Concomitant]
     Active Substance: LISINOPRIL

REACTIONS (4)
  - Injection site mass [None]
  - Injection site swelling [None]
  - Injection site pruritus [None]
  - Injection site pain [None]

NARRATIVE: CASE EVENT DATE: 20160219
